FAERS Safety Report 6528984-6 (Version None)
Quarter: 2009Q4

REPORT INFORMATION
  Report Type: 
  Country: None (occurrence: None)
  Receive Date: 20091222
  Receipt Date: 20091217
  Transmission Date: 20100525
  Serious: Yes (Disabling)
  Sender: FDA-Public Use
  Company Number: DE-EBEWE-1916FLUORO09

PATIENT
  Age: 67 Year
  Sex: Male

DRUGS (1)
  1. FLUOROURACIL [Suspect]
     Indication: CHEMOTHERAPY
     Dates: start: 20040901, end: 20050201

REACTIONS (1)
  - PARAESTHESIA [None]
